FAERS Safety Report 11421826 (Version 2)
Quarter: 2015Q4

REPORT INFORMATION
  Report Type: Report from Study
  Country: US (occurrence: US)
  Receive Date: 20150827
  Receipt Date: 20151023
  Transmission Date: 20160304
  Serious: Yes (Hospitalization, Other)
  Sender: FDA-Public Use
  Company Number: US-AMGEN-USASP2015087313

PATIENT
  Age: 77 Year
  Sex: Female

DRUGS (9)
  1. ENBREL [Suspect]
     Active Substance: ETANERCEPT
     Indication: RHEUMATOID ARTHRITIS
     Dosage: 50 MG, QWK
     Route: 065
  2. VITAMIN B12 [Concomitant]
     Active Substance: CYANOCOBALAMIN
     Dosage: UNK
  3. OMEPRAZOLE. [Concomitant]
     Active Substance: OMEPRAZOLE
     Indication: GASTROOESOPHAGEAL REFLUX DISEASE
     Dosage: UNK
  4. VITAMIN D                          /00107901/ [Concomitant]
     Active Substance: ERGOCALCIFEROL
     Dosage: UNK
  5. TRIMETHOPRIME [Concomitant]
     Indication: CYSTITIS
     Dosage: UNK
  6. ASA [Concomitant]
     Active Substance: ASPIRIN
     Dosage: 81 MG, UNK
  7. PREDNISONE. [Concomitant]
     Active Substance: PREDNISONE
     Dosage: 7.5 MG, UNK
  8. FOLIC ACID. [Concomitant]
     Active Substance: FOLIC ACID
     Dosage: 1 MG, UNK
  9. DIAZEPAM. [Concomitant]
     Active Substance: DIAZEPAM
     Indication: RESTLESS LEGS SYNDROME
     Dosage: 5 MG, UNK

REACTIONS (18)
  - Gait disturbance [Unknown]
  - Hip arthroplasty [Not Recovered/Not Resolved]
  - Activities of daily living impaired [Unknown]
  - Swelling face [Not Recovered/Not Resolved]
  - Joint range of motion decreased [Unknown]
  - Hospitalisation [Not Recovered/Not Resolved]
  - Limb operation [Not Recovered/Not Resolved]
  - Shoulder arthroplasty [Unknown]
  - Surgery [Unknown]
  - Balance disorder [Unknown]
  - Mobility decreased [Unknown]
  - Temporal arteritis [Not Recovered/Not Resolved]
  - Pain in extremity [Unknown]
  - Foot deformity [Unknown]
  - Foot operation [Not Recovered/Not Resolved]
  - Peripheral swelling [Not Recovered/Not Resolved]
  - Fall [Unknown]
  - Thrombosis [Not Recovered/Not Resolved]
